FAERS Safety Report 16765264 (Version 3)
Quarter: 2019Q4

REPORT INFORMATION
  Report Type: Spontaneous
  Country: US (occurrence: US)
  Receive Date: 20190903
  Receipt Date: 20191010
  Transmission Date: 20200122
  Serious: No
  Sender: FDA-Public Use
  Company Number: US-009507513-1908USA010856

PATIENT
  Age: 30 Year
  Sex: Female
  Weight: 69.84 kg

DRUGS (1)
  1. NEXPLANON [Suspect]
     Active Substance: ETONOGESTREL
     Indication: CONTRACEPTION
     Dosage: 1 SUBDERMAL EVERY 3 YEARS, IN HER RIGHT ARM
     Route: 059
     Dates: start: 20190819

REACTIONS (5)
  - Pain [Not Recovered/Not Resolved]
  - Complication of device removal [Not Recovered/Not Resolved]
  - Device deployment issue [Not Recovered/Not Resolved]
  - Implant site scar [Not Recovered/Not Resolved]
  - Implant site fibrosis [Not Recovered/Not Resolved]

NARRATIVE: CASE EVENT DATE: 20190827
